FAERS Safety Report 7742828-6 (Version None)
Quarter: 2011Q3

REPORT INFORMATION
  Report Type: 
  Country: None (occurrence: None)
  Receive Date: 20110906
  Receipt Date: 20110826
  Transmission Date: 20111222
  Serious: Yes (Other)
  Sender: FDA-Public Use
  Company Number: 2011SP040244

PATIENT
  Sex: Male

DRUGS (1)
  1. PEGATRON (PEGYLATED INTERFERON ALFA-2B W/RIBAVIRIN) [Suspect]
     Indication: HEPATITIS C
     Dates: start: 20100928

REACTIONS (6)
  - INFLUENZA LIKE ILLNESS [None]
  - DRUG EFFECT DECREASED [None]
  - RASH PRURITIC [None]
  - SKIN INFECTION [None]
  - SKIN HAEMORRHAGE [None]
  - ANEURYSM [None]
